FAERS Safety Report 26214092 (Version 1)
Quarter: 2025Q4

REPORT INFORMATION
  Report Type: Report from Study
  Country: US (occurrence: US)
  Receive Date: 20251230
  Receipt Date: 20251230
  Transmission Date: 20260117
  Serious: Yes (Hospitalization, Other)
  Sender: ABBVIE
  Company Number: US-ABBVIE-6609246

PATIENT
  Age: 57 Year
  Sex: Female

DRUGS (1)
  1. SKYRIZI [Suspect]
     Active Substance: RISANKIZUMAB-RZAA
     Indication: Psoriasis
     Route: 058
     Dates: start: 20250828

REACTIONS (2)
  - Appendicitis perforated [Recovering/Resolving]
  - Colectomy [Unknown]

NARRATIVE: CASE EVENT DATE: 20250101
